FAERS Safety Report 9694696 (Version 1)
Quarter: 2013Q4

REPORT INFORMATION
  Report Type: Spontaneous
  Country: US (occurrence: US)
  Receive Date: 20131119
  Receipt Date: 20131119
  Transmission Date: 20140711
  Serious: Yes (Hospitalization)
  Sender: FDA-Public Use
  Company Number: US-SUN PHARMACEUTICAL INDUSTRIES LTD-2013SUN05019

PATIENT
  Age: 8 Year
  Sex: Male
  Weight: 27 kg

DRUGS (1)
  1. LITHIUM CARBONATE TABLETS, USP 300MG [Suspect]
     Indication: OPPOSITIONAL DEFIANT DISORDER
     Dosage: 55 MG/KG, QD (600MG EVERY MORNING AND 900MG EVERY EVENING)
     Route: 065

REACTIONS (4)
  - Renal failure acute [Unknown]
  - Nephrogenic diabetes insipidus [Unknown]
  - Toxicity to various agents [Unknown]
  - Overdose [Unknown]
